FAERS Safety Report 17280171 (Version 1)
Quarter: 2020Q1

REPORT INFORMATION
  Report Type: Spontaneous
  Country: FR (occurrence: FR)
  Receive Date: 20200117
  Receipt Date: 20200117
  Transmission Date: 20200409
  Serious: Yes (Hospitalization)
  Sender: FDA-Public Use
  Company Number: FR-SUN PHARMACEUTICAL INDUSTRIES LTD-2020RR-233537

PATIENT
  Age: 13 Year
  Sex: Female
  Weight: 53 kg

DRUGS (2)
  1. IBUPROFENE [Suspect]
     Active Substance: IBUPROFEN
     Indication: POISONING DELIBERATE
     Dosage: EN PLUS 1/2 PLAQUETTE D^ANTARENE 10MG ; IN TOTAL
     Route: 048
     Dates: start: 20190404, end: 20190404
  2. PARACETAMOL [Suspect]
     Active Substance: ACETAMINOPHEN
     Indication: POISONING DELIBERATE
     Dosage: IN TOTAL
     Route: 048
     Dates: start: 20190404, end: 20190404

REACTIONS (1)
  - Abdominal pain [Recovered/Resolved]

NARRATIVE: CASE EVENT DATE: 20190404
